FAERS Safety Report 15937616 (Version 8)
Quarter: 2021Q4

REPORT INFORMATION
  Report Type: Other
  Country: GB (occurrence: GB)
  Receive Date: 20190208
  Receipt Date: 20211117
  Transmission Date: 20220303
  Serious: Yes (Other)
  Sender: FDA-Public Use
  Company Number: GB-CELLTRION INC.-2019GB018436

PATIENT

DRUGS (33)
  1. INFLIXIMAB [Suspect]
     Active Substance: INFLIXIMAB
     Indication: Product used for unknown indication
     Dosage: 450 MG
     Route: 065
  2. INFLIXIMAB [Suspect]
     Active Substance: INFLIXIMAB
     Dosage: 450 MG
     Route: 065
  3. INFLIXIMAB [Suspect]
     Active Substance: INFLIXIMAB
     Dosage: 450 MG
     Route: 065
  4. INFLIXIMAB [Suspect]
     Active Substance: INFLIXIMAB
     Dosage: 450 MG
     Route: 065
  5. INFLIXIMAB [Suspect]
     Active Substance: INFLIXIMAB
     Dosage: 450 MG
     Route: 065
     Dates: end: 202005
  6. INFLIXIMAB [Suspect]
     Active Substance: INFLIXIMAB
     Dosage: 450 MG
     Route: 065
     Dates: end: 202005
  7. INFLIXIMAB [Suspect]
     Active Substance: INFLIXIMAB
     Dosage: 450 MG
     Route: 065
     Dates: start: 20200528
  8. INFLIXIMAB [Suspect]
     Active Substance: INFLIXIMAB
     Dosage: 450 MG
     Route: 065
     Dates: start: 20200528
  9. INFLIXIMAB [Suspect]
     Active Substance: INFLIXIMAB
     Dosage: UNK
     Route: 065
  10. INFLIXIMAB [Suspect]
     Active Substance: INFLIXIMAB
     Dosage: UNK
     Route: 065
  11. INFLIXIMAB [Suspect]
     Active Substance: INFLIXIMAB
     Dosage: UNK
     Route: 065
  12. INFLIXIMAB [Suspect]
     Active Substance: INFLIXIMAB
     Dosage: 450 MG
     Route: 065
  13. INFLIXIMAB [Suspect]
     Active Substance: INFLIXIMAB
     Dosage: 450 MG
     Route: 065
  14. SODIUM CHLORIDE [Suspect]
     Active Substance: SODIUM CHLORIDE
     Indication: Medication dilution
     Dosage: UNK
     Route: 065
  15. SODIUM CHLORIDE [Suspect]
     Active Substance: SODIUM CHLORIDE
     Dosage: UNK
     Route: 065
  16. SODIUM CHLORIDE [Suspect]
     Active Substance: SODIUM CHLORIDE
     Dosage: UNK
     Route: 065
     Dates: end: 202005
  17. SODIUM CHLORIDE [Suspect]
     Active Substance: SODIUM CHLORIDE
     Dosage: UNK
     Route: 065
     Dates: end: 202005
  18. SODIUM CHLORIDE [Suspect]
     Active Substance: SODIUM CHLORIDE
     Dosage: UNK
     Route: 065
     Dates: start: 20200528
  19. SODIUM CHLORIDE [Suspect]
     Active Substance: SODIUM CHLORIDE
     Dosage: UNK
     Route: 065
     Dates: start: 20200528
  20. SODIUM CHLORIDE [Suspect]
     Active Substance: SODIUM CHLORIDE
     Dosage: (DOSAGE FORM: 230)
     Route: 065
  21. SODIUM CHLORIDE [Suspect]
     Active Substance: SODIUM CHLORIDE
     Dosage: (DOSAGE FORM: 230)
     Route: 065
  22. WATER FOR INJECTION [Suspect]
     Active Substance: WATER
     Indication: Medication dilution
     Dosage: UNK
     Route: 065
  23. WATER FOR INJECTION [Suspect]
     Active Substance: WATER
     Dosage: UNK
     Route: 065
  24. WATER FOR INJECTION [Suspect]
     Active Substance: WATER
     Dosage: UNK
     Route: 065
     Dates: end: 202005
  25. WATER FOR INJECTION [Suspect]
     Active Substance: WATER
     Dosage: UNK
     Route: 065
     Dates: end: 202005
  26. WATER FOR INJECTION [Suspect]
     Active Substance: WATER
     Dosage: UNK
     Route: 065
     Dates: start: 20200528
  27. WATER FOR INJECTION [Suspect]
     Active Substance: WATER
     Dosage: UNK
     Route: 065
     Dates: start: 20200528
  28. WATER FOR INJECTION [Suspect]
     Active Substance: WATER
     Dosage: (DOSAGE FORM: 236)
     Route: 065
  29. WATER FOR INJECTION [Suspect]
     Active Substance: WATER
     Dosage: (DOSAGE FORM: 236)
     Route: 065
  30. SODIUM CHLORIDE [Suspect]
     Active Substance: SODIUM CHLORIDE
     Indication: Medication dilution
     Dosage: PHARMACEUTICAL DOSE FORM: 230
     Route: 065
  31. SODIUM CHLORIDE [Suspect]
     Active Substance: SODIUM CHLORIDE
     Dosage: PHARMACEUTICAL DOSE FORM: 230
     Route: 065
  32. WATER FOR INJECTION [Suspect]
     Active Substance: WATER
     Indication: Medication dilution
     Dosage: PHARMACEUTICAL DOSE FORM: 236
     Route: 065
  33. WATER FOR INJECTION [Suspect]
     Active Substance: WATER
     Dosage: PHARMACEUTICAL DOSE FORM: 236
     Route: 065

REACTIONS (15)
  - Post procedural discharge [Unknown]
  - Procedural pain [Unknown]
  - Crohn^s disease [Unknown]
  - Crohn^s disease [Unknown]
  - Ear infection [Recovering/Resolving]
  - Lower respiratory tract infection [Unknown]
  - Erythema [Unknown]
  - Staphylococcal infection [Recovering/Resolving]
  - Breast abscess [Unknown]
  - Subcutaneous abscess [Unknown]
  - Groin abscess [Unknown]
  - Disease recurrence [Unknown]
  - Symptom recurrence [Unknown]
  - Cough [Recovering/Resolving]
  - Pyrexia [Unknown]

NARRATIVE: CASE EVENT DATE: 20200528
